FAERS Safety Report 12573313 (Version 2)
Quarter: 2016Q3

REPORT INFORMATION
  Report Type: Spontaneous
  Country: US (occurrence: US)
  Receive Date: 20160720
  Receipt Date: 20160721
  Transmission Date: 20161109
  Serious: No
  Sender: FDA-Public Use
  Company Number: US-SHIRE-US201608829

PATIENT
  Sex: Female
  Weight: 54.42 kg

DRUGS (1)
  1. PENTASA [Suspect]
     Active Substance: MESALAMINE
     Indication: CROHN^S DISEASE
     Dosage: 2000 MG (FOUR 500 MG), 1X/DAY:QD
     Route: 048
     Dates: start: 2005

REACTIONS (3)
  - Road traffic accident [Recovered/Resolved]
  - Product use issue [Not Recovered/Not Resolved]
  - Adverse drug reaction [Not Recovered/Not Resolved]

NARRATIVE: CASE EVENT DATE: 2005
